FAERS Safety Report 6219292-1 (Version None)
Quarter: 2009Q2

REPORT INFORMATION
  Report Type: 
  Country: None (occurrence: None)
  Receive Date: 20090609
  Receipt Date: 20090529
  Transmission Date: 20091009
  Serious: Yes (Hospitalization)
  Sender: FDA-Public Use
  Company Number: JP-JNJFOC-20090502503

PATIENT
  Sex: Female
  Weight: 60 kg

DRUGS (6)
  1. REMICADE [Suspect]
     Dosage: 2 INFUSIONS TOTAL
     Route: 042
  2. REMICADE [Suspect]
     Indication: RHEUMATOID ARTHRITIS
     Route: 042
  3. METHOTREXATE [Suspect]
     Indication: RHEUMATOID ARTHRITIS
     Route: 048
  4. FOLIAMIN [Concomitant]
     Indication: PROPHYLAXIS
     Route: 048
  5. MOBIC [Concomitant]
     Indication: RHEUMATOID ARTHRITIS
     Route: 048
  6. ALFAROL [Concomitant]
     Indication: OSTEOPOROSIS PROPHYLAXIS
     Dosage: DOSE: 0.5RG
     Route: 048

REACTIONS (2)
  - HERPES ZOSTER DISSEMINATED [None]
  - MENINGITIS ASEPTIC [None]
